FAERS Safety Report 7468933-X (Version None)
Quarter: 2011Q2

REPORT INFORMATION
  Report Type: 
  Country: None (occurrence: None)
  Receive Date: 20110510
  Receipt Date: 20110125
  Transmission Date: 20111010
  Serious: No
  Sender: FDA-Public Use
  Company Number: A0893233A

PATIENT
  Age: 48 Year
  Sex: Female

DRUGS (3)
  1. METROGEL [Concomitant]
  2. VELTIN [Suspect]
     Route: 061
     Dates: start: 20101117
  3. UNKNOWN MEDICATION [Concomitant]

REACTIONS (3)
  - APPLICATION SITE BURN [None]
  - THERMAL BURN [None]
  - ERYTHEMA [None]
